FAERS Safety Report 11914709 (Version 1)
Quarter: 2016Q1

REPORT INFORMATION
  Report Type: Spontaneous
  Country: US (occurrence: US)
  Receive Date: 20160113
  Receipt Date: 20160113
  Transmission Date: 20160526
  Serious: No
  Sender: FDA-Public Use
  Company Number: US-OSMOTICA_PHARMACEUTICAL_CORP-POI0573201500061

PATIENT
  Age: 67 Year
  Sex: Male

DRUGS (1)
  1. NIFEDIPINE ER [Suspect]
     Active Substance: NIFEDIPINE
     Indication: HYPERTENSION
     Dates: start: 20150904

REACTIONS (2)
  - Food interaction [Recovered/Resolved]
  - Hypertension [Recovered/Resolved]

NARRATIVE: CASE EVENT DATE: 20150930
